FAERS Safety Report 23569298 (Version 1)
Quarter: 2024Q1

REPORT INFORMATION
  Report Type: Spontaneous
  Country: IN (occurrence: IN)
  Receive Date: 20240227
  Receipt Date: 20240227
  Transmission Date: 20240409
  Serious: Yes (Hospitalization, Other)
  Sender: FDA-Public Use
  Company Number: IN-AMGEN-INDSP2024036332

PATIENT
  Age: 32 Year
  Sex: Female

DRUGS (6)
  1. FILGRASTIM [Suspect]
     Active Substance: FILGRASTIM
     Indication: Acute lymphocytic leukaemia
     Dosage: 5 MICROGRAM/KILOGRAM/ DOSE FOR A TOTAL OF SIX DOSES FROM DAYS 1 TO 6
     Route: 058
  2. CYTARABINE [Concomitant]
     Active Substance: CYTARABINE
     Indication: Acute lymphocytic leukaemia recurrent
     Dosage: UNK
     Route: 065
  3. FLUDARABINE [Concomitant]
     Active Substance: FLUDARABINE PHOSPHATE
     Indication: Acute lymphocytic leukaemia recurrent
     Dosage: 30 MILLIGRAM/SQ. METER, QD (FROM DAYS 1 TO 5, TOTALING FIVE DOSES)
     Route: 042
  4. IDARUBICIN [Concomitant]
     Active Substance: IDARUBICIN
     Indication: Acute lymphocytic leukaemia recurrent
     Dosage: UNK
     Route: 065
  5. BORTEZOMIB [Concomitant]
     Active Substance: BORTEZOMIB
     Indication: Acute lymphocytic leukaemia recurrent
     Dosage: 1.3 MILLIGRAM/SQ. METER ON DAYS 1, 4, 8, AND 11
     Route: 058
  6. CYTARABINE [Concomitant]
     Active Substance: CYTARABINE
     Indication: Acute lymphocytic leukaemia recurrent
     Dosage: 2 GRAM PER SQUARE METRE, QD FOR FOUR HOURS
     Route: 042

REACTIONS (2)
  - Febrile neutropenia [Unknown]
  - Klebsiella sepsis [Unknown]
